FAERS Safety Report 18608672 (Version 1)
Quarter: 2020Q4

REPORT INFORMATION
  Report Type: Report from Study
  Country: CA (occurrence: CA)
  Receive Date: 20201213
  Receipt Date: 20201213
  Transmission Date: 20210114
  Serious: Yes (Other)
  Sender: FDA-Public Use
  Company Number: CA-JNJFOC-20201213510

PATIENT
  Age: 18 Year
  Sex: Female
  Weight: 56.5 kg

DRUGS (1)
  1. REMICADE [Suspect]
     Active Substance: INFLIXIMAB
     Indication: CROHN^S DISEASE
     Dosage: ON 05-DEC-2020, THE PATIENT HAD RECEIVED 10TH 400 MG INFLIXIMAB INFUSION AND PARTIAL HARVEY BRADSHAW
     Route: 042
     Dates: start: 20200306

REACTIONS (7)
  - Infusion related reaction [Recovered/Resolved]
  - Diarrhoea [Unknown]
  - Heart rate increased [Recovered/Resolved]
  - Dyspnoea [Recovered/Resolved]
  - Chest pain [Recovered/Resolved]
  - Abdominal pain [Unknown]
  - Frequent bowel movements [Unknown]

NARRATIVE: CASE EVENT DATE: 20201204
